FAERS Safety Report 12987167 (Version 2)
Quarter: 2016Q4

REPORT INFORMATION
  Report Type: Spontaneous
  Country: JP (occurrence: JP)
  Receive Date: 20161130
  Receipt Date: 20161206
  Transmission Date: 20170207
  Serious: Yes (Hospitalization, Other)
  Sender: FDA-Public Use
  Company Number: JP-JNJFOC-20160824138

PATIENT
  Age: 89 Year
  Sex: Male
  Weight: 51 kg

DRUGS (8)
  1. MAINTATE [Concomitant]
     Active Substance: BISOPROLOL FUMARATE
     Route: 048
     Dates: start: 20081122
  2. URSO [Concomitant]
     Active Substance: URSODIOL
     Route: 048
     Dates: start: 20110722
  3. ROCEPHIN [Concomitant]
     Active Substance: CEFTRIAXONE SODIUM
     Route: 042
     Dates: start: 20160627, end: 20160721
  4. ALDACTONE A [Concomitant]
     Active Substance: SPIRONOLACTONE
     Route: 048
     Dates: start: 20090207
  5. XARELTO [Suspect]
     Active Substance: RIVAROXABAN
     Indication: THROMBOSIS PROPHYLAXIS
     Route: 048
     Dates: start: 20130612, end: 20160817
  6. TAKEPRON [Concomitant]
     Active Substance: LANSOPRAZOLE
     Indication: GASTROOESOPHAGEAL REFLUX DISEASE
     Route: 048
     Dates: start: 20120622
  7. BENZBROMARONE [Concomitant]
     Active Substance: BENZBROMARONE
     Route: 048
     Dates: start: 20090815
  8. LASIX [Concomitant]
     Active Substance: FUROSEMIDE
     Route: 048
     Dates: start: 20090207

REACTIONS (2)
  - Subdural haematoma [Unknown]
  - Endocarditis [Recovered/Resolved]

NARRATIVE: CASE EVENT DATE: 20160625
